FAERS Safety Report 9294651 (Version 1)
Quarter: 2013Q2

REPORT INFORMATION
  Report Type: Spontaneous
  Country: AU (occurrence: AU)
  Receive Date: 20130517
  Receipt Date: 20130517
  Transmission Date: 20140414
  Serious: Yes (Other)
  Sender: FDA-Public Use
  Company Number: AU-ROCHE-1225624

PATIENT
  Sex: Female

DRUGS (7)
  1. HERCEPTIN [Suspect]
     Indication: BREAST CANCER METASTATIC
     Route: 065
  2. VINORELBINE [Concomitant]
  3. DOCETAXEL [Concomitant]
  4. LAPATINIB DITOSYLATE [Concomitant]
  5. XELODA [Concomitant]
     Route: 065
  6. PACLITAXEL [Concomitant]
  7. VINORELBINE [Concomitant]

REACTIONS (1)
  - Disease progression [Unknown]
